FAERS Safety Report 4847693-2 (Version None)
Quarter: 2005Q4

REPORT INFORMATION
  Report Type: 
  Country: None (occurrence: None)
  Receive Date: 20051207
  Receipt Date: 20050727
  Transmission Date: 20060501
  Serious: Yes (Hospitalization)
  Sender: FDA-Public Use
  Company Number: US-MERCK-0507USA04321

PATIENT
  Age: 63 Year
  Sex: Male
  Weight: 55 kg

DRUGS (3)
  1. VIOXX [Suspect]
     Route: 048
     Dates: start: 19990901, end: 20010901
  2. VIOXX [Suspect]
     Route: 048
  3. TYLENOL [Concomitant]
     Route: 065

REACTIONS (10)
  - CHEST PAIN [None]
  - CONSTIPATION [None]
  - CORONARY ARTERY DISEASE [None]
  - EXTRASYSTOLES [None]
  - HERNIA [None]
  - HIATUS HERNIA [None]
  - MYOCARDIAL INFARCTION [None]
  - NOCTURIA [None]
  - RHINITIS ALLERGIC [None]
  - SEASONAL ALLERGY [None]
